FAERS Safety Report 5135304-0 (Version None)
Quarter: 2006Q4

REPORT INFORMATION
  Report Type: 
  Country: None (occurrence: None)
  Receive Date: 20061026
  Receipt Date: 20061016
  Transmission Date: 20070319
  Serious: Yes (Hospitalization)
  Sender: FDA-Public Use
  Company Number: US-BAYER-200616033BWH

PATIENT
  Sex: Female

DRUGS (1)
  1. AVELOX [Suspect]
     Indication: BRONCHITIS
     Route: 048
     Dates: start: 20061011

REACTIONS (7)
  - APHASIA [None]
  - DIZZINESS [None]
  - HOT FLUSH [None]
  - HYPOAESTHESIA [None]
  - HYPOKINESIA [None]
  - PALLOR [None]
  - PARAESTHESIA [None]
